FAERS Safety Report 6298100-7 (Version None)
Quarter: 2009Q3

REPORT INFORMATION
  Report Type: 
  Country: None (occurrence: None)
  Receive Date: 20090804
  Receipt Date: 20090804
  Transmission Date: 20100115
  Serious: Yes (Other)
  Sender: FDA-Public Use
  Company Number: None

PATIENT
  Sex: Female
  Weight: 56.6996 kg

DRUGS (1)
  1. MACROBID [Suspect]
     Indication: URINARY TRACT INFECTION
     Dosage: 1 CAPSULE, TWICE DAILY, PO
     Route: 048
     Dates: start: 20090728, end: 20090802

REACTIONS (7)
  - ASTHENIA [None]
  - CHILLS [None]
  - FATIGUE [None]
  - MALAISE [None]
  - PAIN [None]
  - PRURITUS GENERALISED [None]
  - PYREXIA [None]
